FAERS Safety Report 9620922 (Version 1)
Quarter: 2013Q4

REPORT INFORMATION
  Report Type: Spontaneous
  Country: GB (occurrence: GB)
  Receive Date: 20131015
  Receipt Date: 20131015
  Transmission Date: 20140711
  Serious: Yes (Other)
  Sender: FDA-Public Use
  Company Number: GB-JNJFOC-20131004930

PATIENT
  Sex: Female

DRUGS (1)
  1. RISPERDAL CONSTA [Suspect]
     Indication: AUTISM
     Route: 030

REACTIONS (4)
  - Drug withdrawal syndrome [Unknown]
  - Abnormal behaviour [Unknown]
  - Drug withdrawal convulsions [Unknown]
  - Off label use [Unknown]
